FAERS Safety Report 18242190 (Version 1)
Quarter: 2020Q3

REPORT INFORMATION
  Report Type: Spontaneous
  Country: US (occurrence: US)
  Receive Date: 20200908
  Receipt Date: 20200908
  Transmission Date: 20201103
  Serious: Yes (Other)
  Sender: FDA-Public Use
  Company Number: None

PATIENT
  Age: 33 Year
  Sex: Male

DRUGS (2)
  1. RINVOQ [Concomitant]
     Active Substance: UPADACITINIB
     Dates: start: 20200516
  2. RINVOQ [Suspect]
     Active Substance: UPADACITINIB
     Indication: RHEUMATOID ARTHRITIS
     Route: 048
     Dates: start: 20200516

REACTIONS (2)
  - Dysphemia [None]
  - Skin papilloma [None]

NARRATIVE: CASE EVENT DATE: 20200702
